FAERS Safety Report 25658800 (Version 1)
Quarter: 2025Q3

REPORT INFORMATION
  Report Type: Other
  Country: IL (occurrence: IL)
  Receive Date: 20250808
  Receipt Date: 20250808
  Transmission Date: 20251020
  Serious: Yes (Hospitalization, Other)
  Sender: CREEKWOOD PHARMACEUTICALS LLC
  Company Number: IL-Creekwood Pharmaceuticals LLC-2182096

PATIENT
  Age: 76 Year
  Sex: Male

DRUGS (8)
  1. PREGABALIN [Suspect]
     Active Substance: PREGABALIN
     Indication: Facial pain
  2. PREGABALIN [Suspect]
     Active Substance: PREGABALIN
     Indication: Neuralgia
  3. AMITRIPTYLINE HYDROCHLORIDE [Suspect]
     Active Substance: AMITRIPTYLINE HYDROCHLORIDE
  4. PREDNISONE [Concomitant]
     Active Substance: PREDNISONE
  5. ACYCLOVIR [Concomitant]
     Active Substance: ACYCLOVIR
  6. BUPRENORPHINE [Suspect]
     Active Substance: BUPRENORPHINE
  7. TRAMADOL [Suspect]
     Active Substance: TRAMADOL
  8. ESCITALOPRAM [Suspect]
     Active Substance: ESCITALOPRAM OXALATE

REACTIONS (25)
  - Serotonin syndrome [Recovered/Resolved]
  - Drug ineffective [Unknown]
  - Accidental overdose [Unknown]
  - Toxicity to various agents [Recovered/Resolved]
  - Hypertonia [Recovered/Resolved]
  - Pyrexia [Recovered/Resolved]
  - Anxiety [Recovered/Resolved]
  - Hyperaesthesia [Recovered/Resolved]
  - Dysarthria [Recovered/Resolved]
  - Delusion [Recovered/Resolved]
  - Apathy [Recovered/Resolved]
  - Tremor [Recovered/Resolved]
  - Balance disorder [Recovered/Resolved]
  - Memory impairment [Recovered/Resolved]
  - Gait disturbance [Recovered/Resolved]
  - Restlessness [Recovered/Resolved]
  - Confusional state [Recovered/Resolved]
  - Agitation [Recovered/Resolved]
  - Tachycardia [Recovered/Resolved]
  - Fall [Recovered/Resolved]
  - Mood swings [Recovered/Resolved]
  - Slow speech [Recovered/Resolved]
  - Hyperreflexia [Recovered/Resolved]
  - Distractibility [Recovered/Resolved]
  - Clonus [Recovered/Resolved]
